FAERS Safety Report 12329143 (Version 1)
Quarter: 2016Q2

REPORT INFORMATION
  Report Type: Spontaneous
  Country: US (occurrence: US)
  Receive Date: 20160503
  Receipt Date: 20160503
  Transmission Date: 20160815
  Serious: No
  Sender: FDA-Public Use
  Company Number: US-ASTRAZENECA-2016SE36475

PATIENT
  Age: 4 Month
  Sex: Male
  Weight: 7.3 kg

DRUGS (1)
  1. SYNAGIS [Suspect]
     Active Substance: PALIVIZUMAB
     Indication: RESPIRATORY SYNCYTIAL VIRUS INFECTION
     Dosage: 50 MG PER 0.5 VIAL, 15 MG PER KG, EVERY 28 DAYS
     Route: 030
     Dates: start: 20151115

REACTIONS (1)
  - Cough [Unknown]

NARRATIVE: CASE EVENT DATE: 201601
